FAERS Safety Report 16902290 (Version 3)
Quarter: 2019Q4

REPORT INFORMATION
  Report Type: Spontaneous
  Country: CA (occurrence: CA)
  Receive Date: 20191010
  Receipt Date: 20191107
  Transmission Date: 20200122
  Serious: Yes (Death)
  Sender: FDA-Public Use
  Company Number: CA-HRARD-201900723

PATIENT
  Sex: Male

DRUGS (2)
  1. LYSODREN [Suspect]
     Active Substance: MITOTANE
     Indication: ADRENOCORTICAL CARCINOMA
     Dosage: ONGOING AT 4 GRAMS/DAY
  2. LYSODREN [Suspect]
     Active Substance: MITOTANE
     Indication: ADRENOCORTICAL CARCINOMA
     Dosage: 4-4-2-2??MEDICATION WAS NOT STOPPED
     Dates: start: 201803

REACTIONS (2)
  - Quality of life decreased [Unknown]
  - Fatigue [Unknown]
